FAERS Safety Report 4471557-X (Version None)
Quarter: 2004Q4

REPORT INFORMATION
  Report Type: 
  Country: None (occurrence: None)
  Receive Date: 20041012
  Receipt Date: 20040721
  Transmission Date: 20050328
  Serious: Yes (Other)
  Sender: FDA-Public Use
  Company Number: US-GLAXOSMITHKLINE-A0519224A

PATIENT
  Age: 71 Year
  Sex: Female

DRUGS (5)
  1. PAXIL [Suspect]
     Indication: DEPRESSION
     Dosage: 10MG UNKNOWN
     Route: 048
     Dates: start: 19950101, end: 20040101
  2. PAXIL CR [Suspect]
     Indication: DEPRESSION
     Dosage: 12.5MG PER DAY
     Route: 048
     Dates: start: 20040101
  3. NEXIUM [Concomitant]
  4. THYROID MEDICATION [Concomitant]
  5. ATIVAN [Concomitant]

REACTIONS (3)
  - HEADACHE [None]
  - SUICIDAL IDEATION [None]
  - WEIGHT INCREASED [None]
